FAERS Safety Report 5925794-5 (Version None)
Quarter: 2008Q4

REPORT INFORMATION
  Report Type: 
  Country: None (occurrence: None)
  Receive Date: 20081021
  Receipt Date: 20081008
  Transmission Date: 20090506
  Serious: Yes (Other)
  Sender: FDA-Public Use
  Company Number: GB-ELI_LILLY_AND_COMPANY-GB200810002755

PATIENT
  Sex: Female

DRUGS (9)
  1. FORTEO [Suspect]
     Dosage: UNK, UNKNOWN
     Route: 065
  2. LORAZEPAM [Concomitant]
     Dosage: UNK, UNKNOWN
     Route: 065
  3. ADCAL [Concomitant]
     Dosage: UNK, UNKNOWN
     Route: 065
  4. PREDNISOLONE [Concomitant]
     Dosage: UNK, UNKNOWN
     Route: 065
  5. CLONAZEPAM [Concomitant]
     Dosage: UNK, UNKNOWN
     Route: 065
  6. DICLOFENAC [Concomitant]
     Dosage: UNK, UNKNOWN
     Route: 065
  7. SALBUTAMOL [Concomitant]
     Dosage: UNK, UNKNOWN
     Route: 065
  8. MORPHINE SULFATE [Concomitant]
     Dosage: UNK, UNKNOWN
     Route: 065
  9. MORPHINE [Concomitant]
     Dosage: UNK, UNKNOWN
     Route: 048

REACTIONS (3)
  - LEUKOPENIA [None]
  - NEUTROPENIA [None]
  - T-CELL LYMPHOMA [None]
